APPROVED DRUG PRODUCT: TOBRAMYCIN SULFATE
Active Ingredient: TOBRAMYCIN SULFATE
Strength: EQ 40MG BASE/ML
Dosage Form/Route: INJECTABLE;INJECTION
Application: A064021 | Product #002
Applicant: APOTHECON INC DIV BRISTOL MYERS SQUIBB
Approved: May 31, 1994 | RLD: No | RS: No | Type: DISCN